FAERS Safety Report 4956470-3 (Version None)
Quarter: 2006Q1

REPORT INFORMATION
  Report Type: 
  Country: None (occurrence: None)
  Receive Date: 20060328
  Receipt Date: 20060328
  Transmission Date: 20060701
  Serious: Yes (Other)
  Sender: FDA-Public Use
  Company Number: None

PATIENT

DRUGS (4)
  1. CURAFIL [Suspect]
     Indication: WOUND TREATMENT
     Dosage: TOPICAL GEL
     Route: 061
     Dates: start: 20051110
  2. CURAFIL [Suspect]
     Indication: WOUND TREATMENT
     Dosage: TOPICAL GEL
     Route: 061
     Dates: start: 20051121
  3. CURAFIL [Suspect]
     Indication: WOUND TREATMENT
     Dosage: TOPICAL GEL
     Route: 061
     Dates: start: 20051125
  4. CURAFIL [Suspect]
     Indication: WOUND TREATMENT
     Dosage: TOPICAL GEL
     Route: 061
     Dates: start: 20060111

REACTIONS (2)
  - PAIN [None]
  - WOUND COMPLICATION [None]
